FAERS Safety Report 19237035 (Version 2)
Quarter: 2021Q3

REPORT INFORMATION
  Report Type: Report from Study
  Country: US (occurrence: US)
  Receive Date: 20210510
  Receipt Date: 20210712
  Transmission Date: 20211014
  Serious: Yes (Other)
  Sender: FDA-Public Use
  Company Number: NVSC2021US095840

PATIENT
  Sex: Female

DRUGS (1)
  1. KESIMPTA [Suspect]
     Active Substance: OFATUMUMAB
     Indication: RELAPSING MULTIPLE SCLEROSIS
     Dosage: 20 MG/KG (BENEATH THE SKIN USUALLY VIA INJECTION)
     Route: 058

REACTIONS (2)
  - Multiple sclerosis [Unknown]
  - Inappropriate schedule of product administration [Unknown]
